FAERS Safety Report 4640755-4 (Version None)
Quarter: 2005Q2

REPORT INFORMATION
  Report Type: 
  Country: None (occurrence: None)
  Receive Date: 20050322
  Receipt Date: 20050127
  Transmission Date: 20051028
  Serious: Yes (Other)
  Sender: FDA-Public Use
  Company Number: HQWYE944928JAN05

PATIENT

DRUGS (1)
  1. PROTONIX [Suspect]
     Dosage: AEROSOL
     Route: 055

REACTIONS (1)
  - HEPATITIS [None]
